FAERS Safety Report 4290736-8 (Version None)
Quarter: 2004Q1

REPORT INFORMATION
  Report Type: 
  Country: None (occurrence: None)
  Receive Date: 20040209
  Receipt Date: 20040209
  Transmission Date: 20041129
  Serious: Yes (Disabling)
  Sender: FDA-Public Use
  Company Number: None

PATIENT
  Age: 62 Year
  Sex: Female
  Weight: 68.0396 kg

DRUGS (1)
  1. ZICAM [Suspect]
     Indication: NASOPHARYNGITIS
     Dosage: USED AS DIRECTED ONLY 3 X
     Route: 045
     Dates: start: 20040115, end: 20040117

REACTIONS (3)
  - ANOSMIA [None]
  - NASAL DRYNESS [None]
  - RHINORRHOEA [None]
